FAERS Safety Report 11135488 (Version 1)
Quarter: 2015Q2

REPORT INFORMATION
  Report Type: Spontaneous
  Country: US (occurrence: None)
  Receive Date: 20150522
  Receipt Date: 20150522
  Transmission Date: 20150821
  Serious: Yes (Hospitalization, Disabling, Other)
  Sender: FDA-Public Use
  Company Number: None

PATIENT
  Age: 34 Month
  Sex: Female
  Weight: 74.84 kg

DRUGS (1)
  1. SINUFRIN NEILMED [Suspect]
     Active Substance: OXYMETAZOLINE HYDROCHLORIDE

REACTIONS (3)
  - Drug dependence [None]
  - Incorrect drug administration duration [None]
  - Anxiety [None]

NARRATIVE: CASE EVENT DATE: 20150301
